FAERS Safety Report 5276168-4 (Version None)
Quarter: 2007Q1

REPORT INFORMATION
  Report Type: 
  Country: None (occurrence: None)
  Receive Date: 20070326
  Receipt Date: 20070319
  Transmission Date: 20070707
  Serious: Yes (Other)
  Sender: FDA-Public Use
  Company Number: US-SHR-US-2007-009852

PATIENT
  Age: 40 Year
  Sex: Female
  Weight: 56 kg

DRUGS (1)
  1. MIRENA [Suspect]
     Indication: CONTRACEPTION
     Dosage: 20 A?G/DAY, CONT
     Route: 015
     Dates: start: 20040101, end: 20070315

REACTIONS (9)
  - ALOPECIA [None]
  - ANXIETY [None]
  - ARTHRALGIA [None]
  - BLOOD PRESSURE DECREASED [None]
  - COMPLICATION OF DEVICE INSERTION [None]
  - DEPRESSION [None]
  - HYPERMETABOLISM [None]
  - HYPERTRICHOSIS [None]
  - INSOMNIA [None]
